FAERS Safety Report 7071880-9 (Version None)
Quarter: 2010Q4

REPORT INFORMATION
  Report Type: 
  Country: None (occurrence: None)
  Receive Date: 20101029
  Receipt Date: 20091029
  Transmission Date: 20110411
  Serious: No
  Sender: FDA-Public Use
  Company Number: A0814021A

PATIENT
  Age: 24 Year
  Sex: Female

DRUGS (8)
  1. ADVAIR DISKUS 100/50 [Suspect]
     Indication: ASTHMA
     Dosage: 1PUFF TWICE PER DAY
     Route: 055
     Dates: start: 20090601, end: 20091001
  2. VERAMYST [Concomitant]
  3. PAXIL [Concomitant]
  4. ESTRADIOL [Concomitant]
  5. SINGULAIR [Concomitant]
  6. MULTI-VITAMIN [Concomitant]
  7. PROBIOTIC [Concomitant]
  8. BLACK CURRANT [Concomitant]

REACTIONS (1)
  - DRUG INEFFECTIVE [None]
